FAERS Safety Report 8814013 (Version 1)
Quarter: 2012Q4

REPORT INFORMATION
  Report Type: 
  Country: US (occurrence: US)
  Receive Date: 20120928
  Receipt Date: 20120928
  Transmission Date: 20130627
  Serious: No
  Sender: FDA-Public Use
  Company Number: US-PFIZER INC-2012240167

PATIENT
  Sex: Female

DRUGS (2)
  1. NEURONTIN [Suspect]
     Indication: NEURALGIA
     Dosage: UNK
     Dates: start: 201209, end: 201209
  2. TRAMADOL HCL [Suspect]
     Indication: PAIN
     Dosage: 50 mg, 2x/day

REACTIONS (4)
  - Drug ineffective [Unknown]
  - Head discomfort [Unknown]
  - Feeling abnormal [Unknown]
  - Constipation [Unknown]
